FAERS Safety Report 6222705-2 (Version None)
Quarter: 2009Q2

REPORT INFORMATION
  Report Type: 
  Country: None (occurrence: None)
  Receive Date: 20090609
  Receipt Date: 20090609
  Transmission Date: 20091009
  Serious: Yes (Life-Threatening, Hospitalization)
  Sender: FDA-Public Use
  Company Number: None

PATIENT
  Age: 55 Year
  Sex: Female
  Weight: 33.9291 kg

DRUGS (1)
  1. BYETTA [Suspect]
     Indication: DIABETES MELLITUS
     Dosage: BYETTA 10 MCG BID SQ
     Route: 058
     Dates: start: 20060613, end: 20090601

REACTIONS (2)
  - DEHYDRATION [None]
  - PANCREATITIS ACUTE [None]
